FAERS Safety Report 9413806 (Version 1)
Quarter: 2013Q3

REPORT INFORMATION
  Report Type: Spontaneous
  Country: FR (occurrence: None)
  Receive Date: 20130719
  Receipt Date: 20130719
  Transmission Date: 20140515
  Serious: Yes (Hospitalization, Other)
  Sender: FDA-Public Use
  Company Number: 2013192215

PATIENT
  Age: 41 Year
  Sex: Female

DRUGS (5)
  1. ARACYTINE [Suspect]
     Indication: ACUTE MYELOID LEUKAEMIA
     Dosage: CYCLIC (DAY 1 TO DAY 3)
     Route: 042
     Dates: start: 20130306
  2. DAUNORUBICIN (DAUNORUBICIN) [Concomitant]
  3. VALDOXAN (AGOMELATINE) [Concomitant]
  4. NUCTALON (ESTAZOLAM) [Concomitant]
  5. LUTENYL (NOMEGESTROL ACETATE) [Suspect]

REACTIONS (3)
  - Lung infiltration [None]
  - Bone marrow failure [None]
  - Alveolitis allergic [None]
